FAERS Safety Report 8004814-0 (Version None)
Quarter: 2011Q4

REPORT INFORMATION
  Report Type: 
  Country: None (occurrence: None)
  Receive Date: 20111223
  Receipt Date: 20111215
  Transmission Date: 20120403
  Serious: Yes (Other)
  Sender: FDA-Public Use
  Company Number: DE-BRISTOL-MYERS SQUIBB COMPANY-16056715

PATIENT
  Age: 65 Year
  Sex: Female
  Weight: 73 kg

DRUGS (1)
  1. ORENCIA [Suspect]
     Indication: RHEUMATOID ARTHRITIS
     Dosage: 23RD INF:01AUG2011 (CH1D67634 AND CH1E66347) 24TH INF:20SEP2011(CH11E66347)
     Route: 042
     Dates: start: 20091201

REACTIONS (1)
  - SJOGREN'S SYNDROME [None]
